FAERS Safety Report 6492254-5 (Version None)
Quarter: 2009Q4

REPORT INFORMATION
  Report Type: 
  Country: None (occurrence: None)
  Receive Date: 20091214
  Receipt Date: 20091207
  Transmission Date: 20100525
  Serious: Yes (Death, Other)
  Sender: FDA-Public Use
  Company Number: CH-ELI_LILLY_AND_COMPANY-CH200912001848

PATIENT
  Age: 49 Year
  Sex: Female

DRUGS (4)
  1. PEMETREXED [Suspect]
     Indication: NON-SMALL CELL LUNG CANCER STAGE IV
     Dosage: 500 MG/M2, UNKNOWN
     Route: 065
  2. FOLIC ACID [Concomitant]
     Indication: SUPPLEMENTATION THERAPY
     Dosage: UNK, UNKNOWN
     Route: 065
  3. VITAMIN B-12 [Concomitant]
     Indication: SUPPLEMENTATION THERAPY
     Dosage: UNK, UNKNOWN
     Route: 065
  4. DEXAMETHASONE TAB [Concomitant]
     Indication: SUPPLEMENTATION THERAPY
     Dosage: UNK, UNKNOWN
     Route: 065

REACTIONS (5)
  - LIMB IMMOBILISATION [None]
  - LOCALISED INFECTION [None]
  - PNEUMONIA [None]
  - RADIATION SKIN INJURY [None]
  - SKIN NECROSIS [None]
